FAERS Safety Report 6627744-5 (Version None)
Quarter: 2010Q1

REPORT INFORMATION
  Report Type: 
  Country: None (occurrence: None)
  Receive Date: 20100311
  Receipt Date: 20100304
  Transmission Date: 20100710
  Serious: Yes (Hospitalization)
  Sender: FDA-Public Use
  Company Number: PHHY2010MX13323

PATIENT
  Sex: Male

DRUGS (1)
  1. TRILEPTAL [Suspect]
     Indication: EPILEPSY
     Dosage: 300 MG DAILY
     Route: 048

REACTIONS (3)
  - FALL [None]
  - MUSCULOSKELETAL STIFFNESS [None]
  - SKIN DISCOLOURATION [None]
